FAERS Safety Report 17521037 (Version 6)
Quarter: 2020Q3

REPORT INFORMATION
  Report Type: Spontaneous
  Country: FR (occurrence: FR)
  Receive Date: 20200310
  Receipt Date: 20200903
  Transmission Date: 20201102
  Serious: Yes (Death, Other)
  Sender: FDA-Public Use
  Company Number: FR-PFIZER INC-2020102774

PATIENT
  Age: 72 Year
  Sex: Female

DRUGS (3)
  1. PALBOCICLIB [Suspect]
     Active Substance: PALBOCICLIB
     Indication: BREAST CANCER METASTATIC
     Dosage: 125 MG, CYCLIC, 4 WEEK CYCLES (3 WEEKS OF TREATMENT FOLLOWED BY 1 WEEK OFF)
     Route: 048
     Dates: start: 201901
  2. EXEMESTANE. [Suspect]
     Active Substance: EXEMESTANE
     Indication: BREAST CANCER METASTATIC
     Dosage: 25 MG, DAILY (25 MILLIGRAM EVERY 1 DAY(S))
     Dates: start: 201901
  3. PALBOCICLIB [Suspect]
     Active Substance: PALBOCICLIB
     Dosage: 100 MG, 1X/DAY (100 MG PER DAY)
     Route: 048
     Dates: start: 2019

REACTIONS (21)
  - Lymphopenia [Fatal]
  - Epstein-Barr virus infection [Fatal]
  - Sepsis [Unknown]
  - Leukopenia [Not Recovered/Not Resolved]
  - Condition aggravated [Unknown]
  - Myelosuppression [Fatal]
  - Acute respiratory failure [Not Recovered/Not Resolved]
  - Hypercalcaemia [Unknown]
  - Pyrexia [Not Recovered/Not Resolved]
  - Discomfort [Unknown]
  - Cell-mediated immune deficiency [Fatal]
  - Viral infection [Fatal]
  - Klebsiella infection [Not Recovered/Not Resolved]
  - Aspergillus infection [Not Recovered/Not Resolved]
  - Anaemia [Unknown]
  - Pneumocystis jirovecii pneumonia [Fatal]
  - Cytomegalovirus infection [Fatal]
  - Neutropenia [Unknown]
  - Enterococcal infection [Not Recovered/Not Resolved]
  - Infection reactivation [Not Recovered/Not Resolved]
  - Herpes simplex [Fatal]

NARRATIVE: CASE EVENT DATE: 2019
